FAERS Safety Report 10630285 (Version 1)
Quarter: 2014Q4

REPORT INFORMATION
  Report Type: Spontaneous
  Country: US (occurrence: US)
  Receive Date: 20141205
  Receipt Date: 20141205
  Transmission Date: 20150529
  Serious: No
  Sender: FDA-Public Use
  Company Number: US-BRISTOL-MYERS SQUIBB COMPANY-21248810

PATIENT
  Age: 31 Year
  Sex: Male

DRUGS (5)
  1. ABILIFY [Suspect]
     Active Substance: ARIPIPRAZOLE
     Dates: start: 20140505
  2. ABILIFY MAINTENA [Suspect]
     Active Substance: ARIPIPRAZOLE
     Route: 065
     Dates: start: 20140505
  3. LITHIUM [Concomitant]
     Active Substance: LITHIUM CARBONATE
  4. CLONAZEPAM. [Concomitant]
     Active Substance: CLONAZEPAM
  5. CELEXA [Concomitant]
     Active Substance: CITALOPRAM HYDROBROMIDE

REACTIONS (2)
  - Drug administration error [Unknown]
  - No adverse event [Unknown]
